FAERS Safety Report 10312313 (Version 2)
Quarter: 2014Q4

REPORT INFORMATION
  Report Type: Spontaneous
  Country: FR (occurrence: FR)
  Receive Date: 20140718
  Receipt Date: 20141121
  Transmission Date: 20150528
  Serious: Yes (Hospitalization)
  Sender: FDA-Public Use
  Company Number: FR-ASTRAZENECA-2014SE50204

PATIENT
  Age: 3211 Week
  Sex: Male

DRUGS (7)
  1. KARDEGIC [Interacting]
     Active Substance: ASPIRIN LYSINE
     Indication: CORONARY ARTERY BYPASS
     Route: 048
     Dates: start: 20140521
  2. KARDEGIC [Interacting]
     Active Substance: ASPIRIN LYSINE
     Indication: CORONARY ARTERY BYPASS
     Route: 048
     Dates: end: 20140518
  3. BRILIQUE [Suspect]
     Active Substance: TICAGRELOR
     Indication: CORONARY ARTERY BYPASS
     Route: 048
     Dates: end: 20140518
  4. CRESTOR [Concomitant]
     Active Substance: ROSUVASTATIN CALCIUM
     Route: 048
  5. CARVEDILOL. [Concomitant]
     Active Substance: CARVEDILOL
  6. VENLAFAXINE [Concomitant]
     Active Substance: VENLAFAXINE HYDROCHLORIDE
  7. PERINDOPRIL [Concomitant]
     Active Substance: PERINDOPRIL

REACTIONS (6)
  - Barrett^s oesophagus [Unknown]
  - Anaemia [Recovering/Resolving]
  - Haematemesis [Recovered/Resolved]
  - Lymphadenopathy [Unknown]
  - Therapy cessation [Unknown]
  - Drug interaction [Unknown]

NARRATIVE: CASE EVENT DATE: 20140519
